FAERS Safety Report 7239381-2 (Version None)
Quarter: 2011Q1

REPORT INFORMATION
  Report Type: 
  Country: None (occurrence: None)
  Receive Date: 20110121
  Receipt Date: 20110114
  Transmission Date: 20110831
  Serious: No
  Sender: FDA-Public Use
  Company Number: JP-PFIZER INC-2010179593

PATIENT
  Age: 68 Year
  Sex: Female

DRUGS (2)
  1. RIVOTRIL [Suspect]
     Dosage: UNK
  2. LYRICA [Suspect]
     Indication: POST HERPETIC NEURALGIA
     Dosage: 75 MG, 2X/DAY
     Route: 048
     Dates: start: 20101224, end: 20101226

REACTIONS (2)
  - HYPOAESTHESIA [None]
  - NAUSEA [None]
